FAERS Safety Report 5495355-3 (Version None)
Quarter: 2007Q4

REPORT INFORMATION
  Report Type: 
  Country: None (occurrence: None)
  Receive Date: 20071024
  Receipt Date: 20071017
  Transmission Date: 20080405
  Serious: Yes (Hospitalization)
  Sender: FDA-Public Use
  Company Number: ES-MERCK-0710ESP00027

PATIENT
  Age: 76 Year
  Sex: Male

DRUGS (4)
  1. ZOCOR [Suspect]
     Indication: HYPERCHOLESTEROLAEMIA
     Route: 065
  2. RISPERIDONE [Suspect]
     Indication: PSYCHOMOTOR HYPERACTIVITY
     Route: 065
  3. RISPERIDONE [Suspect]
     Indication: CONFUSIONAL STATE
     Route: 065
  4. INSULIN [Concomitant]
     Indication: TYPE 2 DIABETES MELLITUS
     Route: 065

REACTIONS (2)
  - DRUG INTERACTION [None]
  - RHABDOMYOLYSIS [None]
